FAERS Safety Report 11438572 (Version 3)
Quarter: 2015Q4

REPORT INFORMATION
  Report Type: Spontaneous
  Country: US (occurrence: US)
  Receive Date: 20150901
  Receipt Date: 20151006
  Transmission Date: 20160304
  Serious: Yes (Hospitalization)
  Sender: FDA-Public Use
  Company Number: US-009507513-1508USA013246

PATIENT
  Age: 71 Year
  Sex: Female

DRUGS (9)
  1. EMEND [Suspect]
     Active Substance: APREPITANT
     Indication: NAUSEA
     Dosage: 125 MG ON DAY 1
     Route: 048
     Dates: start: 2013, end: 2013
  2. EMEND [Suspect]
     Active Substance: APREPITANT
     Dosage: 80 MG ON DAY 2
     Route: 048
     Dates: start: 201503, end: 201503
  3. EMEND [Suspect]
     Active Substance: APREPITANT
     Dosage: 125 MG ON DAY 1
     Route: 048
     Dates: start: 201503, end: 201503
  4. TAXOTERE [Concomitant]
     Active Substance: DOCETAXEL
     Dosage: UNK
  5. LANTUS [Concomitant]
     Active Substance: INSULIN GLARGINE
     Dosage: UNK
  6. EMEND [Suspect]
     Active Substance: APREPITANT
     Dosage: 80 MG ON DAY THREE
     Route: 048
     Dates: start: 2013, end: 2013
  7. CARBOPLATIN. [Concomitant]
     Active Substance: CARBOPLATIN
     Dosage: UNK
  8. EMEND [Suspect]
     Active Substance: APREPITANT
     Dosage: 80 MG ON DAY 2
     Route: 048
     Dates: start: 2013, end: 2013
  9. EMEND [Suspect]
     Active Substance: APREPITANT
     Dosage: 80 MG ON DAY THREE
     Route: 048
     Dates: start: 201503, end: 201503

REACTIONS (3)
  - Transfusion [Unknown]
  - Adverse event [Unknown]
  - Transfusion [Unknown]

NARRATIVE: CASE EVENT DATE: 2013
